FAERS Safety Report 11915948 (Version 3)
Quarter: 2016Q1

REPORT INFORMATION
  Report Type: Report from Study
  Country: BR (occurrence: BR)
  Receive Date: 20160114
  Receipt Date: 20160211
  Transmission Date: 20160526
  Serious: Yes (Hospitalization, Other)
  Sender: FDA-Public Use
  Company Number: PHHY2016BR001073

PATIENT
  Age: 64 Year
  Sex: Female
  Weight: 65 kg

DRUGS (5)
  1. PURAN [Concomitant]
     Active Substance: LEVOTHYROXINE SODIUM
     Indication: HORMONE REPLACEMENT THERAPY
     Dosage: 1 DF, QD
     Route: 048
  2. ARADOIS [Concomitant]
     Active Substance: LOSARTAN POTASSIUM
     Indication: HYPERTENSION
     Dosage: 1 DF (25 MG), QD
     Route: 048
  3. PURAN [Concomitant]
     Active Substance: LEVOTHYROXINE SODIUM
     Indication: HYPOTHYROIDISM
  4. ACLASTA [Suspect]
     Active Substance: ZOLEDRONIC ACID
     Indication: VERTEBRAL LESION
     Dosage: 1 DF, Q12MO
     Route: 042
     Dates: start: 201501
  5. LIBIAN 28 [Concomitant]
     Indication: MENOPAUSE
     Dosage: 1 DF (12.5 MG), QD
     Route: 048

REACTIONS (13)
  - Cerebrovascular accident [Recovering/Resolving]
  - Coronary artery occlusion [Recovering/Resolving]
  - Mouth swelling [Recovered/Resolved]
  - Back pain [Recovering/Resolving]
  - Chest pain [Recovering/Resolving]
  - Depressed mood [Unknown]
  - Venous occlusion [Unknown]
  - Feeling abnormal [Unknown]
  - Haemorrhage [Recovered/Resolved]
  - Ischaemia [Unknown]
  - Pain [Unknown]
  - Hypertension [Unknown]
  - Product use issue [Unknown]

NARRATIVE: CASE EVENT DATE: 201501
